FAERS Safety Report 4269585-2 (Version None)
Quarter: 2004Q1

REPORT INFORMATION
  Report Type: 
  Country: None (occurrence: None)
  Receive Date: 20040112
  Receipt Date: 20040105
  Transmission Date: 20041129
  Serious: Yes (Hospitalization, Other)
  Sender: FDA-Public Use
  Company Number: DE-SHR-03-018673

PATIENT
  Age: 30 Year
  Sex: Female

DRUGS (2)
  1. MIRENA [Suspect]
     Indication: CONTRACEPTION
     Dosage: 20 MICROG/DAY, CONT, INTRA-UTERINE
     Route: 015
     Dates: start: 20031205, end: 20031210
  2. NEUROPLANT [Concomitant]

REACTIONS (3)
  - CARDIOVASCULAR DISORDER [None]
  - MENORRHAGIA [None]
  - UTERINE HAEMORRHAGE [None]
